FAERS Safety Report 8391929-0 (Version None)
Quarter: 2012Q2

REPORT INFORMATION
  Report Type: 
  Country: None (occurrence: None)
  Receive Date: 20120529
  Receipt Date: 20120516
  Transmission Date: 20120825
  Serious: Yes (Hospitalization)
  Sender: FDA-Public Use
  Company Number: FR-GLAXOSMITHKLINE-B0801658A

PATIENT
  Sex: Female

DRUGS (2)
  1. ARIXTRA [Suspect]
     Indication: THROMBOPHLEBITIS
     Dosage: 7.5MG PER DAY
     Route: 058
     Dates: start: 20120316
  2. PENTOXIFYLLINE [Suspect]
     Indication: THROMBOPHLEBITIS
     Dosage: 25MG PER DAY
     Route: 048
     Dates: start: 20120316

REACTIONS (7)
  - PUPILS UNEQUAL [None]
  - BRAIN OEDEMA [None]
  - ALTERED STATE OF CONSCIOUSNESS [None]
  - HEADACHE [None]
  - VOMITING PROJECTILE [None]
  - SUBDURAL HAEMATOMA [None]
  - CEREBRAL HAEMORRHAGE [None]
